FAERS Safety Report 7449195-6 (Version None)
Quarter: 2011Q2

REPORT INFORMATION
  Report Type: 
  Country: None (occurrence: None)
  Receive Date: 20110502
  Receipt Date: 20110420
  Transmission Date: 20111010
  Serious: Yes (Hospitalization)
  Sender: FDA-Public Use
  Company Number: JP-BIOGENIDEC-2009BI041500

PATIENT
  Age: 33 Year
  Sex: Female

DRUGS (10)
  1. BETAMETHASONE [Concomitant]
     Dates: start: 20090413, end: 20090417
  2. ALLEGRA [Concomitant]
     Dates: start: 20090415
  3. ACTONEL [Concomitant]
     Dates: start: 20071113, end: 20090225
  4. AVONEX [Suspect]
     Indication: RELAPSING-REMITTING MULTIPLE SCLEROSIS
     Route: 030
     Dates: start: 20081227, end: 20090102
  5. AVONEX [Suspect]
     Route: 030
     Dates: start: 20090103, end: 20090109
  6. AVONEX [Suspect]
     Route: 030
     Dates: start: 20090110, end: 20100109
  7. LOXOPROFEN SODIUM [Concomitant]
     Dates: start: 20081227
  8. RIVOTRIL [Concomitant]
     Dates: start: 20090103
  9. GASTER D [Concomitant]
     Dates: start: 20071113, end: 20090225
  10. PREDNISOLONE [Concomitant]
     Dates: start: 20071113, end: 20090225

REACTIONS (2)
  - MYASTHENIA GRAVIS [None]
  - THYMOMA [None]
